FAERS Safety Report 20302040 (Version 2)
Quarter: 2022Q1

REPORT INFORMATION
  Report Type: Spontaneous
  Country: US (occurrence: None)
  Receive Date: 20220105
  Receipt Date: 20220214
  Transmission Date: 20220423
  Serious: No
  Sender: FDA-Public Use
  Company Number: 2021A896074

PATIENT
  Age: 76 Year
  Sex: Female
  Weight: 54.4 kg

DRUGS (1)
  1. CALQUENCE [Suspect]
     Active Substance: ACALABRUTINIB
     Route: 048
     Dates: start: 20211011

REACTIONS (10)
  - White blood cell count abnormal [Not Recovered/Not Resolved]
  - Foreign body in throat [Unknown]
  - Tremor [Not Recovered/Not Resolved]
  - Panic attack [Not Recovered/Not Resolved]
  - Illness anxiety disorder [Unknown]
  - Obsessive-compulsive disorder [Unknown]
  - Dizziness [Not Recovered/Not Resolved]
  - Headache [Not Recovered/Not Resolved]
  - Diarrhoea [Not Recovered/Not Resolved]
  - Off label use [Not Recovered/Not Resolved]

NARRATIVE: CASE EVENT DATE: 20210101
